FAERS Safety Report 11292661 (Version 1)
Quarter: 2015Q2

REPORT INFORMATION
  Report Type: Spontaneous
  Country: US (occurrence: None)
  Receive Date: 20150623
  Receipt Date: 20150623
  Transmission Date: 20150821
  Serious: Yes (Other)
  Sender: FDA-Public Use
  Company Number: RB-74918-2015

PATIENT
  Age: 76 Year
  Sex: Male

DRUGS (1)
  1. DEXTROMETHORPHAN/GUAIFENESIN 1200 MG (RB RECKITT BENCKISER)) [Suspect]
     Active Substance: DEXTROMETHORPHAN\GUAIFENESIN
     Indication: PRODUCT USED FOR UNKNOWN INDICATION
     Dosage: (2400 MG 1X/12 HOURS, PATIENT TOOK LAST DOSE ON 05-JAN-2015 AT 12:30 PM. UNKNOWN)
     Dates: start: 20150102

REACTIONS (2)
  - Overdose [None]
  - Somnolence [None]
